FAERS Safety Report 15935885 (Version 1)
Quarter: 2019Q1

REPORT INFORMATION
  Report Type: Spontaneous
  Country: FR (occurrence: FR)
  Receive Date: 20190208
  Receipt Date: 20190208
  Transmission Date: 20190417
  Serious: Yes (Hospitalization)
  Sender: FDA-Public Use
  Company Number: FR-ACCORD-106193

PATIENT
  Age: 77 Year
  Sex: Male
  Weight: 64 kg

DRUGS (10)
  1. TAHOR [Concomitant]
     Active Substance: ATORVASTATIN CALCIUM
     Indication: MYOCARDIAL ISCHAEMIA
     Dosage: STRENGTH : 80 MG
     Route: 048
     Dates: start: 20180406
  2. PLAVIX [Suspect]
     Active Substance: CLOPIDOGREL BISULFATE
     Indication: MYOCARDIAL ISCHAEMIA
     Dosage: STRENGTH : 75 MG
     Route: 048
     Dates: start: 20180406, end: 20180419
  3. BACTRIM [Concomitant]
     Active Substance: SULFAMETHOXAZOLE\TRIMETHOPRIM
     Indication: PRODUCT USED FOR UNKNOWN INDICATION
     Route: 048
     Dates: start: 20170403
  4. RAMIPRIL. [Suspect]
     Active Substance: RAMIPRIL
     Indication: MYOCARDIAL ISCHAEMIA
     Route: 048
     Dates: start: 20180406, end: 20180419
  5. VALACICLOVIR [Concomitant]
     Active Substance: VALACYCLOVIR HYDROCHLORIDE
     Indication: PRODUCT USED FOR UNKNOWN INDICATION
     Route: 048
     Dates: start: 20170403
  6. PRIMPERAN [Concomitant]
     Active Substance: METOCLOPRAMIDE HYDROCHLORIDE
     Indication: PROPHYLAXIS OF NAUSEA AND VOMITING
     Dosage: 10 MG, SCORED TABLET
     Route: 048
  7. KARDEGIC [Concomitant]
     Active Substance: ASPIRIN DL-LYSINE
     Indication: MYOCARDIAL ISCHAEMIA
     Dosage: STRENGTH : 75 MG, POWDER FOR ORAL SOLUTION IN SACHET-DOSE
     Route: 048
     Dates: start: 20180406
  8. LANSOPRAZOLE. [Suspect]
     Active Substance: LANSOPRAZOLE
     Indication: PROPHYLAXIS AGAINST GASTROINTESTINAL ULCER
     Route: 048
     Dates: start: 20180406, end: 20180419
  9. BISOPROLOL/BISOPROLOL FUMARATE/BISOPROLOL HEMIFUMARATE [Concomitant]
     Indication: MYOCARDIAL ISCHAEMIA
     Route: 048
     Dates: start: 20180406
  10. TAMSULOSIN/TAMSULOSIN HYDROCHLORIDE [Concomitant]
     Indication: BENIGN PROSTATIC HYPERPLASIA
     Route: 048
     Dates: start: 20170403

REACTIONS (3)
  - Septic shock [Recovered/Resolved with Sequelae]
  - Pseudomonas infection [Recovered/Resolved with Sequelae]
  - Agranulocytosis [Recovered/Resolved with Sequelae]

NARRATIVE: CASE EVENT DATE: 20180418
